FAERS Safety Report 5030644-8 (Version None)
Quarter: 2006Q2

REPORT INFORMATION
  Report Type: 
  Country: None (occurrence: None)
  Receive Date: 20060615
  Receipt Date: 20060607
  Transmission Date: 20061013
  Serious: Yes (Hospitalization, Other)
  Sender: FDA-Public Use
  Company Number: 2006072899

PATIENT
  Age: 49 Year
  Sex: Male
  Weight: 90.7194 kg

DRUGS (7)
  1. LIPITOR [Suspect]
     Indication: BLOOD CHOLESTEROL
     Dosage: 20 MG (20 MG, DAILY), ORAL
     Route: 048
  2. ZOLOFT [Suspect]
     Indication: EMOTIONAL DISORDER
     Dosage: 50 MG (50 MG, DAILY), ORAL
     Route: 048
     Dates: start: 20030101
  3. TROSPIUM CHLORIDE (TROSPIUM CHLORIDE) [Concomitant]
  4. TOPROL-XL [Concomitant]
  5. METFORMIN [Concomitant]
  6. GLIPIZIDE [Concomitant]
  7. HYDROCODONE BITARTRATE [Concomitant]

REACTIONS (7)
  - ANGIOPLASTY [None]
  - ARTHRITIS [None]
  - CARDIAC DISORDER [None]
  - COMA [None]
  - EMOTIONAL DISORDER [None]
  - MICTURITION URGENCY [None]
  - ROAD TRAFFIC ACCIDENT [None]
